FAERS Safety Report 12280718 (Version 1)
Quarter: 2016Q2

REPORT INFORMATION
  Report Type: Spontaneous
  Country: US (occurrence: None)
  Receive Date: 20160418
  Receipt Date: 20160418
  Transmission Date: 20160815
  Serious: No
  Sender: FDA-Public Use
  Company Number: None

PATIENT
  Age: 79 Year
  Sex: Male

DRUGS (1)
  1. STELARA [Suspect]
     Active Substance: USTEKINUMAB
     Indication: PSORIATIC ARTHROPATHY
     Dosage: 45MG Q12W SUBCUTANEOUSLY
     Route: 058
     Dates: start: 20151211, end: 20160413

REACTIONS (1)
  - Loss of control of legs [None]

NARRATIVE: CASE EVENT DATE: 20160128
